FAERS Safety Report 6258290-9 (Version None)
Quarter: 2009Q3

REPORT INFORMATION
  Report Type: 
  Country: None (occurrence: None)
  Receive Date: 20090707
  Receipt Date: 20090703
  Transmission Date: 20100115
  Serious: Yes (Hospitalization)
  Sender: FDA-Public Use
  Company Number: GB-BRISTOL-MYERS SQUIBB COMPANY-14689848

PATIENT
  Age: 90 Year
  Sex: Female

DRUGS (1)
  1. ABILIFY [Suspect]
     Dosage: FORM-TABS.

REACTIONS (1)
  - URINARY TRACT INFECTION [None]
